FAERS Safety Report 4748710-0 (Version None)
Quarter: 2005Q3

REPORT INFORMATION
  Report Type: 
  Country: None (occurrence: None)
  Receive Date: 20050816
  Receipt Date: 20050804
  Transmission Date: 20060218
  Serious: Yes (Hospitalization)
  Sender: FDA-Public Use
  Company Number: TT035/05

PATIENT
  Sex: Female

DRUGS (4)
  1. T.R.U.E. TEST [Suspect]
     Indication: DERMATITIS CONTACT
     Dosage: PATCH TEST
     Dates: start: 20050802, end: 20050802
  2. T.R.U.E. TEST [Suspect]
     Indication: ROSACEA
     Dosage: PATCH TEST
     Dates: start: 20050802, end: 20050802
  3. ALLEGRA DAILY [Concomitant]
  4. EPI-PEN (TO BE ADMINISTERED WHEN ANAPHYLACTIC EPISODES OCCURS) [Concomitant]

REACTIONS (8)
  - APPLICATION SITE ERYTHEMA [None]
  - CHEST PAIN [None]
  - DIZZINESS [None]
  - ERYTHEMA [None]
  - FLUSHING [None]
  - OXYGEN SATURATION DECREASED [None]
  - PARAESTHESIA [None]
  - TACHYCARDIA [None]
